FAERS Safety Report 8247013-X (Version None)
Quarter: 2012Q1

REPORT INFORMATION
  Report Type: 
  Country: None (occurrence: None)
  Receive Date: 20120330
  Receipt Date: 20120330
  Transmission Date: 20120608
  Serious: Yes (Hospitalization)
  Sender: FDA-Public Use
  Company Number: None

PATIENT
  Sex: Female
  Weight: 68 kg

DRUGS (1)
  1. ZYVOX [Suspect]
     Indication: SEPSIS
     Dates: start: 20120325, end: 20120329

REACTIONS (2)
  - SEPSIS [None]
  - ENTEROCOCCAL INFECTION [None]
